FAERS Safety Report 6077602-2 (Version None)
Quarter: 2009Q1

REPORT INFORMATION
  Report Type: 
  Country: None (occurrence: None)
  Receive Date: 20090213
  Receipt Date: 20090205
  Transmission Date: 20090719
  Serious: Yes (Hospitalization)
  Sender: FDA-Public Use
  Company Number: JP-AMGEN-US333180

PATIENT
  Age: 51 Year
  Sex: Female

DRUGS (5)
  1. ENBREL [Suspect]
     Indication: RHEUMATOID ARTHRITIS
     Dosage: UNSPECIFIED
     Route: 058
     Dates: start: 20080317, end: 20081229
  2. TAKEPRON [Concomitant]
     Route: 065
  3. PREDONINE [Concomitant]
     Route: 065
  4. RHEUMATREX [Concomitant]
     Route: 065
  5. HYPEN [Concomitant]
     Route: 065

REACTIONS (4)
  - ABDOMINAL PAIN [None]
  - DYSPNOEA [None]
  - PULMONARY TUBERCULOSIS [None]
  - PYREXIA [None]
